FAERS Safety Report 20168243 (Version 1)
Quarter: 2021Q4

REPORT INFORMATION
  Report Type: Other
  Country: BD (occurrence: None)
  Receive Date: 20211210
  Receipt Date: 20211210
  Transmission Date: 20220303
  Serious: Yes (Hospitalization)
  Sender: FDA-Public Use
  Company Number: BD-ROCHE-2975939

PATIENT
  Age: 56 Year
  Sex: Female

DRUGS (6)
  1. PERJETA [Suspect]
     Active Substance: PERTUZUMAB
     Indication: HER2 positive breast cancer
     Dosage: 840 MG IN 250 ML N/S- T/V OVER 90 MINS.
     Route: 042
  2. HERCEPTIN [Suspect]
     Active Substance: TRASTUZUMAB
     Indication: Product used for unknown indication
     Route: 058
  3. DOCETAXEL [Suspect]
     Active Substance: DOCETAXEL
     Indication: Product used for unknown indication
     Route: 065
  4. EMISTAT (BANGLADESH) [Concomitant]
     Dosage: 8 MG - 1+1+1, BEFORE MEAL - 5 DAYS + IF NAUSEA/VOMITING
  5. ORADEXON [Concomitant]
     Active Substance: DEXAMETHASONE
     Dosage: 0.5MG 3+3+3 AFTER MEAL-3DAYS
  6. HISTACIN [Concomitant]
     Dosage: 4 MG - 0+0+1 - 3 DAYS.

REACTIONS (2)
  - Jaundice [Unknown]
  - Blood bilirubin increased [Unknown]

NARRATIVE: CASE EVENT DATE: 20211120
